FAERS Safety Report 4662041-9 (Version None)
Quarter: 2005Q2

REPORT INFORMATION
  Report Type: 
  Country: None (occurrence: None)
  Receive Date: 20050512
  Receipt Date: 20050502
  Transmission Date: 20051028
  Serious: Yes (Hospitalization, Other)
  Sender: FDA-Public Use
  Company Number: 2005071056

PATIENT
  Sex: Female

DRUGS (2)
  1. BEXTRA [Suspect]
     Indication: ILL-DEFINED DISORDER
  2. DRUG , UNSPECIFIED (DRUG, UNSPECIFIED) [Suspect]
     Indication: ILL-DEFINED DISORDER

REACTIONS (4)
  - ABASIA [None]
  - DIABETIC COMA [None]
  - KNEE OPERATION [None]
  - PAIN [None]
